FAERS Safety Report 9187571 (Version 3)
Quarter: 2013Q4

REPORT INFORMATION
  Report Type: Spontaneous
  Country: US (occurrence: US)
  Receive Date: 20130325
  Receipt Date: 20131031
  Transmission Date: 20140711
  Serious: Yes (Hospitalization, Disabling)
  Sender: FDA-Public Use
  Company Number: US-BAYER-2013-035082

PATIENT
  Age: 28 Year
  Sex: Female
  Weight: 72.56 kg

DRUGS (19)
  1. BEYAZ [Suspect]
     Dosage: UNK
     Dates: start: 201104, end: 201105
  2. TORADOL [Concomitant]
  3. COMPAZINE [Concomitant]
  4. BENADRYL [Concomitant]
  5. SIMVASTATIN [Concomitant]
     Dosage: 20 MG, DAILY
  6. TRAMACET [Concomitant]
  7. ZOCOR [Concomitant]
  8. ZITHROMAX [Concomitant]
     Indication: GONORRHOEA
  9. DIFLUCAN [Concomitant]
  10. SUPRAX [Concomitant]
     Indication: GONORRHOEA
     Dosage: 400 MG, SINGLE DOSE
  11. ADIPEX-P [Concomitant]
     Dosage: 37.5 MG, UNK
     Dates: start: 20080415, end: 20090118
  12. ADIPEX-P [Concomitant]
     Dosage: 37.5 MG, UNK
     Dates: start: 20090603, end: 20091027
  13. ADIPEX-P [Concomitant]
     Dosage: 37.5 MG, UNK
     Dates: start: 20110419, end: 20110903
  14. AMOXICILLIN TRIHYDRATE W/CLAVULANTE POTASSIUM [Concomitant]
     Dosage: 875-125 MG
     Dates: start: 20110224
  15. AMOXICILLIN TRIHYDRATE W/CLAVULANTE POTASSIUM [Concomitant]
     Dosage: 875-125 MG
     Dates: start: 20110523
  16. AZITHROMYCIN [Concomitant]
     Dosage: 250 MG, UNK
     Dates: start: 20110314
  17. AZITHROMYCIN [Concomitant]
     Dosage: 500 MG, UNK
     Dates: start: 20110503
  18. FLUCONAZOLE [Concomitant]
     Dosage: 150 MG, UNK
     Dates: start: 20110503
  19. TREXIMET [Concomitant]

REACTIONS (6)
  - Cerebrovascular accident [None]
  - Blindness [None]
  - Injury [None]
  - Pain [None]
  - Emotional distress [None]
  - Depression [None]
